FAERS Safety Report 6552261-0 (Version None)
Quarter: 2010Q1

REPORT INFORMATION
  Report Type: 
  Country: None (occurrence: None)
  Receive Date: 20100126
  Receipt Date: 20100121
  Transmission Date: 20100710
  Serious: Yes (Other)
  Sender: FDA-Public Use
  Company Number: GB-PFIZER INC-2010008819

PATIENT

DRUGS (2)
  1. CHAMPIX [Suspect]
  2. VALPROATE SODIUM [Interacting]
     Indication: BIPOLAR DISORDER

REACTIONS (3)
  - BIPOLAR DISORDER [None]
  - DRUG INTERACTION [None]
  - MOOD ALTERED [None]
